FAERS Safety Report 7630555-5 (Version None)
Quarter: 2011Q3

REPORT INFORMATION
  Report Type: 
  Country: None (occurrence: None)
  Receive Date: 20110722
  Receipt Date: 20110610
  Transmission Date: 20111222
  Serious: Yes (Other)
  Sender: FDA-Public Use
  Company Number: US-BAYER-2011-013733

PATIENT
  Age: 22 Year
  Sex: Male
  Weight: 72.562 kg

DRUGS (47)
  1. OPTIMARK [Suspect]
     Indication: NUCLEAR MAGNETIC RESONANCE IMAGING
  2. PROHANCE [Suspect]
     Indication: NUCLEAR MAGNETIC RESONANCE IMAGING
  3. APRESOLINE [Concomitant]
  4. ROCALTROL [Concomitant]
  5. GADOLINIUM IN UNSPECIFIED DRUG [Suspect]
     Indication: ANGIOGRAM
  6. HYDROCORTISONE [Concomitant]
  7. DIALVIT [Concomitant]
     Indication: DIALYSIS
     Dosage: 1 PILL DAILY
  8. LEVOTHYROXINE SODIUM [Concomitant]
     Indication: THYROID CANCER
     Dosage: 200 MCG (2 TABS DAILY)
  9. LEXAPRO [Concomitant]
     Indication: DEPRESSION
     Dosage: 20 MG, QD
  10. VOLTAREN [Concomitant]
     Indication: OEDEMA PERIPHERAL
     Dosage: UNK
     Dates: start: 20080401, end: 20090401
  11. PROCARDIA [Concomitant]
     Indication: BLOOD PRESSURE ABNORMAL
     Dosage: UNK
     Dates: start: 20030101, end: 20070101
  12. SYNTHROID [Concomitant]
  13. TOPROL-XL [Concomitant]
  14. MULTIHANCE [Suspect]
     Indication: ANGIOGRAM
  15. DIAMOX SRC [Concomitant]
  16. CATAPRES [Concomitant]
  17. MAGNEVIST [Suspect]
     Indication: NUCLEAR MAGNETIC RESONANCE IMAGING BRAIN
     Dosage: UNK
  18. OMNISCAN [Suspect]
     Dosage: 20 ML
     Dates: start: 20031111, end: 20031111
  19. OXYCODONE HCL [Concomitant]
     Indication: PAIN
     Dosage: UNK
     Dates: start: 20030101
  20. ZEMPLAR [Concomitant]
  21. CALCIUM CARBONATE [Concomitant]
  22. MAGNEVIST [Suspect]
     Indication: ANGIOGRAM
  23. GADOLINIUM IN UNSPECIFIED DRUG [Suspect]
     Indication: VENOGRAM
  24. OPTIMARK [Suspect]
     Indication: ANGIOGRAM
  25. OMNISCAN [Suspect]
     Indication: NUCLEAR MAGNETIC RESONANCE IMAGING BRAIN
     Dosage: UNK UNK, ONCE
     Dates: start: 20030922, end: 20030922
  26. OMNISCAN [Suspect]
     Indication: IMAGING PROCEDURE
     Dosage: UNK UNK, ONCE
     Dates: start: 20031024, end: 20031024
  27. KLONOPIN [Concomitant]
     Indication: PAIN
     Dosage: 1 MG, TID
     Dates: start: 20030101
  28. EPO [Concomitant]
     Indication: DIALYSIS
     Dosage: UNK
     Dates: start: 20020101
  29. VOLTAREN [Concomitant]
     Indication: JOINT SWELLING
  30. GADOLINIUM IN UNSPECIFIED DRUG [Suspect]
     Indication: NUCLEAR MAGNETIC RESONANCE IMAGING BRAIN
     Dosage: UNK
     Dates: start: 20080423, end: 20080423
  31. MULTIHANCE [Suspect]
     Indication: NUCLEAR MAGNETIC RESONANCE IMAGING
  32. HYDROCORTISONE [Concomitant]
     Indication: ADRENAL DISORDER
     Dosage: 10 MG, TID
     Dates: start: 20080101
  33. VITAMIN D [Concomitant]
     Indication: VITAMIN D DECREASED
     Dosage: 1.25 MG, OW
     Dates: start: 20100820
  34. RENAGEL [Concomitant]
  35. EPOGEN [Concomitant]
  36. NORVASC [Concomitant]
  37. GADOLINIUM IN UNSPECIFIED DRUG [Suspect]
     Indication: BACK PAIN
  38. GADOLINIUM IN UNSPECIFIED DRUG [Suspect]
     Indication: NEOPLASM
  39. PROHANCE [Suspect]
     Indication: ANGIOGRAM
  40. SENSIPAR [Concomitant]
     Indication: ADDISON'S DISEASE
     Dosage: 30 MG, QD
  41. FERROUS SULFATE TAB [Concomitant]
     Indication: DIALYSIS
     Dosage: UNK
     Dates: start: 20080101
  42. PREDNISONE [Concomitant]
     Indication: RENAL TRANSPLANT
     Dosage: UNK
     Dates: start: 19970101, end: 20010101
  43. NEPHROVITE [VIT C,VIT H,B5,B12,B9,B3,B6,B2,B1 HCL] [Concomitant]
  44. FERROUS SULFATE TAB [Concomitant]
  45. CLONIDINE [Concomitant]
  46. ADALAT CC [Concomitant]
  47. FOSRENOL [Concomitant]

REACTIONS (12)
  - NEPHROGENIC SYSTEMIC FIBROSIS [None]
  - QUALITY OF LIFE DECREASED [None]
  - FALL [None]
  - STRESS [None]
  - EXTREMITY CONTRACTURE [None]
  - JOINT LOCK [None]
  - ARTHRALGIA [None]
  - PERONEAL NERVE PALSY [None]
  - BACK PAIN [None]
  - MUSCULOSKELETAL PAIN [None]
  - PAIN [None]
  - VASCULAR CALCIFICATION [None]
